FAERS Safety Report 5039631-7 (Version None)
Quarter: 2006Q2

REPORT INFORMATION
  Report Type: 
  Country: None (occurrence: None)
  Receive Date: 20060601
  Receipt Date: 20060119
  Transmission Date: 20061013
  Serious: No
  Sender: FDA-Public Use
  Company Number: 2006PV007359

PATIENT
  Age: 52 Year
  Sex: Female
  Weight: 72.5755 kg

DRUGS (2)
  1. BYETTA [Suspect]
     Indication: DIABETES MELLITUS NON-INSULIN-DEPENDENT
     Dosage: 5 MCG;BID;SC
     Route: 058
     Dates: start: 20050801
  2. ALLEGRA [Concomitant]

REACTIONS (5)
  - DRY EYE [None]
  - DRY THROAT [None]
  - DYSPHONIA [None]
  - HYPERSENSITIVITY [None]
  - PARANASAL SINUS DISCOMFORT [None]
